FAERS Safety Report 10239747 (Version 1)
Quarter: 2014Q2

REPORT INFORMATION
  Report Type: Spontaneous
  Country: US (occurrence: US)
  Receive Date: 20140616
  Receipt Date: 20140616
  Transmission Date: 20141212
  Serious: Yes (Hospitalization)
  Sender: FDA-Public Use
  Company Number: US-B.I. PHARMACEUTICALS,INC./RIDGEFIELD-2014-BI-26443BP

PATIENT
  Age: 84 Year
  Sex: Female

DRUGS (3)
  1. PRADAXA [Suspect]
     Indication: CEREBROVASCULAR ACCIDENT PROPHYLAXIS
     Dosage: 300 MG
     Route: 048
     Dates: start: 201405
  2. PRADAXA [Suspect]
     Indication: ATRIAL FIBRILLATION
  3. BENICAR [Concomitant]
     Indication: HYPERTENSION
     Route: 065
     Dates: start: 2009

REACTIONS (1)
  - Anaphylactic reaction [Recovered/Resolved]
